FAERS Safety Report 4367950-6 (Version None)
Quarter: 2004Q2

REPORT INFORMATION
  Report Type: 
  Country: None (occurrence: None)
  Receive Date: 20040602
  Receipt Date: 20040525
  Transmission Date: 20050107
  Serious: Yes (Hospitalization)
  Sender: FDA-Public Use
  Company Number: IT-BRISTOL-MYERS SQUIBB COMPANY-12596136

PATIENT

DRUGS (6)
  1. EFAVIRENZ [Suspect]
     Indication: HIV INFECTION
  2. LAMIVUDINE [Suspect]
     Indication: HIV INFECTION
  3. ZIDOVUDINE [Suspect]
     Indication: HIV INFECTION
  4. TACROLIMUS [Concomitant]
     Indication: IMMUNOSUPPRESSION
  5. AZATHIOPRINE [Concomitant]
     Indication: IMMUNOSUPPRESSION
  6. STEROIDS [Concomitant]
     Indication: IMMUNOSUPPRESSION

REACTIONS (4)
  - ASCITES [None]
  - HYPERBILIRUBINAEMIA [None]
  - MYOGLOBINURIA [None]
  - RHABDOMYOLYSIS [None]
